FAERS Safety Report 25994101 (Version 1)
Quarter: 2025Q4

REPORT INFORMATION
  Report Type: Spontaneous
  Country: US (occurrence: US)
  Receive Date: 20251104
  Receipt Date: 20251104
  Transmission Date: 20260118
  Serious: Yes (Other)
  Sender: HIKMA
  Company Number: US-HIKMA PHARMACEUTICALS USA INC.-US-H14001-25-11616

PATIENT
  Age: 68 Year
  Sex: Male

DRUGS (1)
  1. THIAMINE [Suspect]
     Active Substance: THIAMINE
     Indication: Product used for unknown indication
     Dosage: 2 DOSAGE FORM
     Route: 042

REACTIONS (1)
  - Blood pressure systolic decreased [Unknown]
